FAERS Safety Report 7003879-2 (Version None)
Quarter: 2010Q3

REPORT INFORMATION
  Report Type: 
  Country: None (occurrence: None)
  Receive Date: 20100920
  Receipt Date: 20091218
  Transmission Date: 20110219
  Serious: No
  Sender: FDA-Public Use
  Company Number: US-WYE-H12713809

PATIENT
  Sex: Male

DRUGS (3)
  1. PRISTIQ [Suspect]
     Indication: DEPRESSION
     Route: 048
     Dates: start: 20091215, end: 20091215
  2. NORVASC [Concomitant]
  3. METFORMIN [Concomitant]

REACTIONS (5)
  - GAIT DISTURBANCE [None]
  - HEADACHE [None]
  - HYPONATRAEMIA [None]
  - MEDICATION ERROR [None]
  - NAUSEA [None]
